FAERS Safety Report 8979030 (Version 1)
Quarter: 2012Q4

REPORT INFORMATION
  Report Type: Spontaneous
  Country: US (occurrence: None)
  Receive Date: 20121218
  Receipt Date: 20121218
  Transmission Date: 20130627
  Serious: Yes (Death)
  Sender: FDA-Public Use
  Company Number: None

PATIENT
  Age: 48 Year
  Sex: Female

DRUGS (8)
  1. LETAIRIS 10MG GILEAD [Suspect]
     Indication: PULMONARY ARTERIAL HYPERTENSION
     Route: 048
     Dates: start: 201207, end: 201210
  2. LASIX [Concomitant]
  3. DIGOXIN [Concomitant]
  4. SPIRONOLACTONE [Concomitant]
  5. POTASSIUM CHLORIDE [Concomitant]
  6. REVATIO [Concomitant]
  7. OMEPRAZOLE [Concomitant]
  8. FLOLAN [Concomitant]

REACTIONS (2)
  - Septic shock [None]
  - Respiratory failure [None]
